FAERS Safety Report 22142320 (Version 1)
Quarter: 2023Q1

REPORT INFORMATION
  Report Type: Spontaneous
  Country: CA (occurrence: CA)
  Receive Date: 20230327
  Receipt Date: 20230327
  Transmission Date: 20230418
  Serious: Yes (Life-Threatening)
  Sender: FDA-Public Use
  Company Number: CA-ACTELION-A-US2018-167042

PATIENT
  Age: 62 Year
  Sex: Male

DRUGS (7)
  1. EPOPROSTENOL [Suspect]
     Active Substance: EPOPROSTENOL
     Indication: Pulmonary arterial hypertension
     Dosage: UNK
     Route: 042
     Dates: start: 20140903
  2. OPSUMIT [Concomitant]
     Active Substance: MACITENTAN
     Indication: Pulmonary arterial hypertension
     Dosage: 10 MG, QD
     Route: 048
     Dates: start: 20150525
  3. OPSUMIT [Concomitant]
     Active Substance: MACITENTAN
     Indication: Pulmonary arterial hypertension
  4. UPTRAVI [Concomitant]
     Active Substance: SELEXIPAG
     Indication: Pulmonary arterial hypertension
     Route: 048
     Dates: start: 20230116
  5. COUMADIN [Concomitant]
     Active Substance: WARFARIN SODIUM
  6. ZOPICLONE [Concomitant]
     Active Substance: ZOPICLONE
  7. ADCIRCA [Concomitant]
     Active Substance: TADALAFIL

REACTIONS (5)
  - Device leakage [Recovered/Resolved]
  - Device physical property issue [Recovered/Resolved]
  - Nervousness [Recovered/Resolved]
  - Stress [Recovered/Resolved]
  - Catheter placement [Recovered/Resolved]

NARRATIVE: CASE EVENT DATE: 20180127
